FAERS Safety Report 11423203 (Version 1)
Quarter: 2015Q3

REPORT INFORMATION
  Report Type: Spontaneous
  Country: US (occurrence: US)
  Receive Date: 20150827
  Receipt Date: 20150827
  Transmission Date: 20151125
  Serious: Yes (Hospitalization)
  Sender: FDA-Public Use
  Company Number: US-CELGENEUS-USA-2015083050

PATIENT
  Age: 32 Year
  Sex: Female
  Weight: 56 kg

DRUGS (2)
  1. ISTODAX [Suspect]
     Active Substance: ROMIDEPSIN
     Indication: HISTIOCYTOSIS HAEMATOPHAGIC
  2. ISTODAX [Suspect]
     Active Substance: ROMIDEPSIN
     Indication: PERIPHERAL T-CELL LYMPHOMA UNSPECIFIED
     Route: 041
     Dates: start: 20150731

REACTIONS (1)
  - Pyrexia [Recovered/Resolved]

NARRATIVE: CASE EVENT DATE: 20150731
